FAERS Safety Report 20773593 (Version 2)
Quarter: 2022Q2

REPORT INFORMATION
  Report Type: Spontaneous
  Country: AR (occurrence: AR)
  Receive Date: 20220502
  Receipt Date: 20220518
  Transmission Date: 20220721
  Serious: Yes (Hospitalization, Other)
  Sender: FDA-Public Use
  Company Number: AR-NOVARTISPH-NVSC2022AR100300

PATIENT
  Sex: Female

DRUGS (6)
  1. CALCIUM [Suspect]
     Active Substance: CALCIUM
     Indication: Hypoparathyroidism
     Dosage: 1000 MG/1.75 G/2.263 G, QD, STARTED A LONG TIME AGO
     Route: 065
     Dates: start: 1975, end: 202111
  2. CALCIUM [Suspect]
     Active Substance: CALCIUM
     Indication: Hypoparathyroidism
     Dosage: UNK
     Route: 065
  3. ERGOCALCIFEROL [Concomitant]
     Active Substance: ERGOCALCIFEROL
     Indication: Hypoparathyroidism
     Dosage: UNK
     Route: 065
  4. CHOLECALCIFEROL [Concomitant]
     Active Substance: CHOLECALCIFEROL
     Indication: Hypoparathyroidism
     Dosage: UNK, (VIAL)
     Route: 065
  5. SODIUM BICARBONATE [Concomitant]
     Active Substance: SODIUM BICARBONATE
     Indication: Hypoparathyroidism
     Dosage: UNK
     Route: 065
  6. LEVOTHYROXINE [Concomitant]
     Active Substance: LEVOTHYROXINE
     Indication: Hyperthyroidism
     Dosage: UNK
     Route: 065

REACTIONS (16)
  - Malabsorption [Recovered/Resolved]
  - Biliary obstruction [Recovering/Resolving]
  - Yellow skin [Recovering/Resolving]
  - Intestinal mass [Recovering/Resolving]
  - Blood bilirubin increased [Recovering/Resolving]
  - Post procedural infection [Recovering/Resolving]
  - Weight decreased [Recovering/Resolving]
  - Diabetes mellitus [Unknown]
  - Anxiety [Unknown]
  - Scar [Unknown]
  - Blood calcium decreased [Unknown]
  - Blood pressure increased [Unknown]
  - Drug intolerance [Unknown]
  - Oral discomfort [Recovered/Resolved]
  - Dental discomfort [Recovered/Resolved]
  - Expired product administered [Unknown]

NARRATIVE: CASE EVENT DATE: 19950101
